FAERS Safety Report 24528603 (Version 2)
Quarter: 2025Q1

REPORT INFORMATION
  Report Type: Spontaneous
  Country: CA (occurrence: CA)
  Receive Date: 20241021
  Receipt Date: 20250227
  Transmission Date: 20250408
  Serious: Yes (Death, Life-Threatening, Hospitalization, Disabling, Other)
  Sender: Haleon PLC
  Company Number: CA-UCBSA-2018014080

PATIENT
  Age: 43 Year
  Sex: Female
  Weight: 68 kg

DRUGS (449)
  1. VOLTAREN [Suspect]
     Active Substance: DICLOFENAC SODIUM
     Indication: Product used for unknown indication
  2. ACETAMINOPHEN [Suspect]
     Active Substance: ACETAMINOPHEN
     Indication: Rheumatoid arthritis
     Route: 065
  3. ACETAMINOPHEN [Suspect]
     Active Substance: ACETAMINOPHEN
     Route: 048
  4. TUMS [Suspect]
     Active Substance: CALCIUM CARBONATE
     Indication: Product used for unknown indication
     Route: 065
  5. TUMS [Suspect]
     Active Substance: CALCIUM CARBONATE
     Route: 065
  6. HYDROCORTISONE [Suspect]
     Active Substance: HYDROCORTISONE
     Indication: Rheumatoid arthritis
     Route: 065
  7. HYDROCORTISONE [Suspect]
     Active Substance: HYDROCORTISONE
     Route: 003
  8. HYDROCORTISONE [Suspect]
     Active Substance: HYDROCORTISONE
     Route: 048
  9. HYDROCORTISONE [Suspect]
     Active Substance: HYDROCORTISONE
     Route: 058
  10. HYDROCORTISONE [Suspect]
     Active Substance: HYDROCORTISONE
     Route: 058
  11. HYDROCORTISONE [Suspect]
     Active Substance: HYDROCORTISONE
     Route: 065
  12. DICLOFENAC DIETHYLAMINE [Suspect]
     Active Substance: DICLOFENAC DIETHYLAMINE
     Indication: Product used for unknown indication
     Route: 065
  13. DICLOFENAC SODIUM [Suspect]
     Active Substance: DICLOFENAC SODIUM
     Indication: Product used for unknown indication
     Route: 065
  14. DICLOFENAC SODIUM [Suspect]
     Active Substance: DICLOFENAC SODIUM
     Route: 058
  15. DICLOFENAC SODIUM [Suspect]
     Active Substance: DICLOFENAC SODIUM
     Route: 065
  16. DICLOFENAC SODIUM [Suspect]
     Active Substance: DICLOFENAC SODIUM
     Route: 047
  17. TRIAMCINOLONE [Suspect]
     Active Substance: TRIAMCINOLONE
     Indication: Product used for unknown indication
     Route: 065
  18. FOLIC ACID [Suspect]
     Active Substance: FOLIC ACID
     Indication: Rheumatoid arthritis
     Route: 065
  19. FOLIC ACID [Suspect]
     Active Substance: FOLIC ACID
     Route: 065
  20. FOLIC ACID [Suspect]
     Active Substance: FOLIC ACID
     Route: 065
  21. FOLIC ACID [Suspect]
     Active Substance: FOLIC ACID
     Route: 065
  22. FOLIC ACID [Suspect]
     Active Substance: FOLIC ACID
     Route: 058
  23. FOLIC ACID [Suspect]
     Active Substance: FOLIC ACID
     Route: 065
  24. FOLIC ACID [Suspect]
     Active Substance: FOLIC ACID
     Route: 048
  25. FOLIC ACID [Suspect]
     Active Substance: FOLIC ACID
     Route: 065
  26. FOLIC ACID [Suspect]
     Active Substance: FOLIC ACID
     Route: 065
  27. FOLIC ACID [Suspect]
     Active Substance: FOLIC ACID
     Route: 065
  28. FOLIC ACID [Suspect]
     Active Substance: FOLIC ACID
     Route: 065
  29. FOLIC ACID [Suspect]
     Active Substance: FOLIC ACID
     Route: 048
  30. FOLIC ACID [Suspect]
     Active Substance: FOLIC ACID
     Route: 058
  31. FOLIC ACID [Suspect]
     Active Substance: FOLIC ACID
     Route: 065
  32. FOLIC ACID [Suspect]
     Active Substance: FOLIC ACID
     Route: 048
  33. FOLIC ACID [Suspect]
     Active Substance: FOLIC ACID
     Route: 048
  34. FOLIC ACID [Suspect]
     Active Substance: FOLIC ACID
     Route: 048
  35. FOLIC ACID [Suspect]
     Active Substance: FOLIC ACID
     Route: 065
  36. FOLIC ACID [Suspect]
     Active Substance: FOLIC ACID
     Route: 065
  37. FOLIC ACID [Suspect]
     Active Substance: FOLIC ACID
     Route: 065
  38. FOLIC ACID [Suspect]
     Active Substance: FOLIC ACID
     Route: 065
  39. FOLIC ACID [Suspect]
     Active Substance: FOLIC ACID
     Route: 065
  40. FOLIC ACID [Suspect]
     Active Substance: FOLIC ACID
     Route: 065
  41. ERELZI [Suspect]
     Active Substance: ETANERCEPT-SZZS
     Indication: Rheumatoid arthritis
     Route: 065
  42. ERELZI [Suspect]
     Active Substance: ETANERCEPT-SZZS
     Route: 065
  43. ERELZI [Suspect]
     Active Substance: ETANERCEPT-SZZS
     Route: 065
  44. ERELZI [Suspect]
     Active Substance: ETANERCEPT-SZZS
     Route: 065
  45. ERELZI [Suspect]
     Active Substance: ETANERCEPT-SZZS
     Route: 065
  46. ERELZI [Suspect]
     Active Substance: ETANERCEPT-SZZS
     Route: 065
  47. ERELZI [Suspect]
     Active Substance: ETANERCEPT-SZZS
     Route: 058
  48. ERELZI [Suspect]
     Active Substance: ETANERCEPT-SZZS
     Route: 058
  49. ERELZI [Suspect]
     Active Substance: ETANERCEPT-SZZS
     Route: 058
  50. ERELZI [Suspect]
     Active Substance: ETANERCEPT-SZZS
     Route: 065
  51. ERELZI [Suspect]
     Active Substance: ETANERCEPT-SZZS
     Route: 065
  52. ERELZI [Suspect]
     Active Substance: ETANERCEPT-SZZS
     Route: 058
  53. ERELZI [Suspect]
     Active Substance: ETANERCEPT-SZZS
     Route: 058
  54. ETANERCEPT [Suspect]
     Active Substance: ETANERCEPT
     Indication: Rheumatoid arthritis
     Route: 058
  55. OXYCODONE [Suspect]
     Active Substance: OXYCODONE
     Indication: Product used for unknown indication
     Route: 065
  56. DOXYCYCLINE [Suspect]
     Active Substance: DOXYCYCLINE
     Indication: Product used for unknown indication
     Route: 065
  57. PREDNISONE [Suspect]
     Active Substance: PREDNISONE
     Indication: Condition aggravated
     Route: 048
  58. PREDNISONE [Suspect]
     Active Substance: PREDNISONE
     Indication: Rheumatoid arthritis
     Route: 048
  59. PREDNISONE [Suspect]
     Active Substance: PREDNISONE
     Indication: Psoriatic arthropathy
     Route: 048
  60. PREDNISONE [Suspect]
     Active Substance: PREDNISONE
     Route: 048
  61. PREDNISONE [Suspect]
     Active Substance: PREDNISONE
     Route: 048
  62. PREDNISONE [Suspect]
     Active Substance: PREDNISONE
     Route: 065
  63. PREDNISONE [Suspect]
     Active Substance: PREDNISONE
     Dosage: (1 EVERY 5 DAYS)
     Route: 042
  64. PREDNISONE [Suspect]
     Active Substance: PREDNISONE
     Route: 048
  65. PREDNISONE [Suspect]
     Active Substance: PREDNISONE
     Route: 048
  66. PREDNISONE [Suspect]
     Active Substance: PREDNISONE
     Route: 042
  67. PREDNISONE [Suspect]
     Active Substance: PREDNISONE
     Route: 065
  68. PREDNISONE [Suspect]
     Active Substance: PREDNISONE
     Route: 065
  69. PREDNISONE [Suspect]
     Active Substance: PREDNISONE
     Route: 065
  70. OXYCODONE TEREPHTHALATE [Suspect]
     Active Substance: OXYCODONE TEREPHTHALATE
     Indication: Product used for unknown indication
     Route: 065
  71. PERIOGARD [Suspect]
     Active Substance: CHLORHEXIDINE GLUCONATE
     Indication: Product used for unknown indication
     Route: 065
  72. REMICADE [Suspect]
     Active Substance: INFLIXIMAB
     Indication: Rheumatoid arthritis
     Route: 042
  73. REMICADE [Suspect]
     Active Substance: INFLIXIMAB
     Indication: Psoriatic arthropathy
     Route: 042
  74. REMICADE [Suspect]
     Active Substance: INFLIXIMAB
     Route: 065
  75. REMICADE [Suspect]
     Active Substance: INFLIXIMAB
     Route: 042
  76. REMICADE [Suspect]
     Active Substance: INFLIXIMAB
     Route: 042
  77. REMICADE [Suspect]
     Active Substance: INFLIXIMAB
     Route: 042
  78. REMICADE [Suspect]
     Active Substance: INFLIXIMAB
     Route: 042
  79. PREDNISONE [Suspect]
     Active Substance: PREDNISONE
     Indication: Rheumatoid arthritis
     Route: 065
  80. PREDNISONE [Suspect]
     Active Substance: PREDNISONE
     Route: 065
  81. HYDROXYCHLOROQUINE SULFATE [Suspect]
     Active Substance: HYDROXYCHLOROQUINE SULFATE
     Indication: Rheumatoid arthritis
     Route: 065
  82. SULFASALAZINE [Suspect]
     Active Substance: SULFASALAZINE
     Indication: Rheumatoid arthritis
     Route: 048
  83. SULFASALAZINE [Suspect]
     Active Substance: SULFASALAZINE
     Route: 048
  84. SULFASALAZINE [Suspect]
     Active Substance: SULFASALAZINE
     Route: 065
  85. SULFASALAZINE [Suspect]
     Active Substance: SULFASALAZINE
     Route: 048
  86. SULFASALAZINE [Suspect]
     Active Substance: SULFASALAZINE
     Route: 065
  87. SULFASALAZINE [Suspect]
     Active Substance: SULFASALAZINE
     Route: 065
  88. SULFASALAZINE [Suspect]
     Active Substance: SULFASALAZINE
     Route: 048
  89. SULFASALAZINE [Suspect]
     Active Substance: SULFASALAZINE
     Route: 048
  90. SULFASALAZINE [Suspect]
     Active Substance: SULFASALAZINE
     Route: 065
  91. SULFASALAZINE [Suspect]
     Active Substance: SULFASALAZINE
     Route: 065
  92. SULFASALAZINE [Suspect]
     Active Substance: SULFASALAZINE
     Route: 065
  93. SULFASALAZINE [Suspect]
     Active Substance: SULFASALAZINE
     Route: 065
  94. SULFASALAZINE [Suspect]
     Active Substance: SULFASALAZINE
     Route: 048
  95. SULFASALAZINE [Suspect]
     Active Substance: SULFASALAZINE
     Route: 048
  96. SULFASALAZINE [Suspect]
     Active Substance: SULFASALAZINE
     Route: 048
  97. SULFASALAZINE [Suspect]
     Active Substance: SULFASALAZINE
     Route: 065
  98. SULFASALAZINE [Suspect]
     Active Substance: SULFASALAZINE
     Route: 048
  99. INFLIXIMAB [Suspect]
     Active Substance: INFLIXIMAB
     Indication: Rheumatoid arthritis
     Route: 042
  100. INFLIXIMAB [Suspect]
     Active Substance: INFLIXIMAB
     Indication: Product used for unknown indication
     Route: 042
  101. INFLIXIMAB [Suspect]
     Active Substance: INFLIXIMAB
     Route: 065
  102. INFLIXIMAB [Suspect]
     Active Substance: INFLIXIMAB
     Route: 065
  103. INFLIXIMAB [Suspect]
     Active Substance: INFLIXIMAB
     Route: 065
  104. INFLIXIMAB [Suspect]
     Active Substance: INFLIXIMAB
     Route: 065
  105. APREMILAST [Suspect]
     Active Substance: APREMILAST
     Indication: Product used for unknown indication
     Route: 065
  106. APREMILAST [Suspect]
     Active Substance: APREMILAST
     Route: 065
  107. USTEKINUMAB [Suspect]
     Active Substance: USTEKINUMAB
     Indication: Psoriatic arthropathy
     Route: 042
  108. USTEKINUMAB [Suspect]
     Active Substance: USTEKINUMAB
     Route: 042
  109. USTEKINUMAB [Suspect]
     Active Substance: USTEKINUMAB
     Route: 042
  110. USTEKINUMAB [Suspect]
     Active Substance: USTEKINUMAB
     Route: 042
  111. USTEKINUMAB [Suspect]
     Active Substance: USTEKINUMAB
     Route: 058
  112. NAPROXEN SODIUM [Suspect]
     Active Substance: NAPROXEN SODIUM
     Indication: Rheumatoid arthritis
     Route: 065
  113. NAPROXEN SODIUM [Suspect]
     Active Substance: NAPROXEN SODIUM
     Route: 065
  114. NAPROXEN SODIUM [Suspect]
     Active Substance: NAPROXEN SODIUM
     Route: 065
  115. NAPROXEN SODIUM [Suspect]
     Active Substance: NAPROXEN SODIUM
     Route: 065
  116. NAPROXEN SODIUM [Suspect]
     Active Substance: NAPROXEN SODIUM
     Route: 065
  117. SULFAMETHOXAZOLE [Suspect]
     Active Substance: SULFAMETHOXAZOLE
     Indication: Product used for unknown indication
     Route: 065
  118. SULFAMETHOXAZOLE [Suspect]
     Active Substance: SULFAMETHOXAZOLE
     Route: 065
  119. SULFAMETHOXAZOLE [Suspect]
     Active Substance: SULFAMETHOXAZOLE
     Route: 065
  120. CALCIUM GLUBIONATE [Suspect]
     Active Substance: CALCIUM GLUBIONATE
     Indication: Product used for unknown indication
     Route: 048
  121. CHLORHEXIDINE [Suspect]
     Active Substance: CHLORHEXIDINE
     Indication: Product used for unknown indication
     Route: 065
  122. CHLORHEXIDINE [Suspect]
     Active Substance: CHLORHEXIDINE
     Route: 061
  123. CHLORHEXIDINE [Suspect]
     Active Substance: CHLORHEXIDINE
     Route: 061
  124. CHLORHEXIDINE [Suspect]
     Active Substance: CHLORHEXIDINE
     Route: 002
  125. CHLORHEXIDINE [Suspect]
     Active Substance: CHLORHEXIDINE
     Route: 065
  126. SULFAMETHOXAZOLE [Suspect]
     Active Substance: SULFAMETHOXAZOLE
     Indication: Product used for unknown indication
     Route: 065
  127. COSENTYX [Suspect]
     Active Substance: SECUKINUMAB
     Indication: Psoriatic arthropathy
  128. COSENTYX [Suspect]
     Active Substance: SECUKINUMAB
     Indication: Rheumatoid arthritis
     Route: 065
  129. DICLOFENAC [Suspect]
     Active Substance: DICLOFENAC
     Indication: Product used for unknown indication
     Route: 048
  130. DICLOFENAC [Suspect]
     Active Substance: DICLOFENAC
     Route: 065
  131. DICLOFENAC [Suspect]
     Active Substance: DICLOFENAC
     Route: 065
  132. DICLOFENAC [Suspect]
     Active Substance: DICLOFENAC
     Route: 065
  133. DICLOFENAC [Suspect]
     Active Substance: DICLOFENAC
     Route: 065
  134. DICLOFENAC [Suspect]
     Active Substance: DICLOFENAC
     Route: 065
  135. LEFLUNOMIDE [Suspect]
     Active Substance: LEFLUNOMIDE
     Indication: Rheumatoid arthritis
     Route: 048
  136. LEFLUNOMIDE [Suspect]
     Active Substance: LEFLUNOMIDE
     Route: 065
  137. LEFLUNOMIDE [Suspect]
     Active Substance: LEFLUNOMIDE
     Route: 065
  138. LEFLUNOMIDE [Suspect]
     Active Substance: LEFLUNOMIDE
     Route: 048
  139. LEFLUNOMIDE [Suspect]
     Active Substance: LEFLUNOMIDE
     Route: 065
  140. METHOTREXATE [Suspect]
     Active Substance: METHOTREXATE
     Indication: Rheumatoid arthritis
     Route: 058
  141. METHOTREXATE [Suspect]
     Active Substance: METHOTREXATE
     Route: 065
  142. METHOTREXATE [Suspect]
     Active Substance: METHOTREXATE
     Route: 065
  143. METHOTREXATE [Suspect]
     Active Substance: METHOTREXATE
     Route: 048
  144. METHOTREXATE [Suspect]
     Active Substance: METHOTREXATE
     Route: 048
  145. METHOTREXATE [Suspect]
     Active Substance: METHOTREXATE
     Route: 048
  146. METHOTREXATE [Suspect]
     Active Substance: METHOTREXATE
     Route: 058
  147. METHOTREXATE [Suspect]
     Active Substance: METHOTREXATE
     Route: 013
  148. METHOTREXATE [Suspect]
     Active Substance: METHOTREXATE
     Route: 048
  149. METHOTREXATE [Suspect]
     Active Substance: METHOTREXATE
     Route: 065
  150. METHOTREXATE [Suspect]
     Active Substance: METHOTREXATE
     Route: 016
  151. METHOTREXATE [Suspect]
     Active Substance: METHOTREXATE
     Route: 016
  152. METHOTREXATE [Suspect]
     Active Substance: METHOTREXATE
     Route: 048
  153. METHOTREXATE [Suspect]
     Active Substance: METHOTREXATE
     Route: 048
  154. METHOTREXATE [Suspect]
     Active Substance: METHOTREXATE
     Route: 065
  155. METHOTREXATE [Suspect]
     Active Substance: METHOTREXATE
     Route: 065
  156. METHOTREXATE [Suspect]
     Active Substance: METHOTREXATE
     Route: 048
  157. METHOTREXATE [Suspect]
     Active Substance: METHOTREXATE
     Route: 048
  158. METHOTREXATE [Suspect]
     Active Substance: METHOTREXATE
     Route: 058
  159. METHOTREXATE [Suspect]
     Active Substance: METHOTREXATE
     Route: 065
  160. METHOTREXATE [Suspect]
     Active Substance: METHOTREXATE
     Route: 058
  161. METHOTREXATE [Suspect]
     Active Substance: METHOTREXATE
     Route: 058
  162. METHOTREXATE [Suspect]
     Active Substance: METHOTREXATE
     Route: 048
  163. METHOTREXATE [Suspect]
     Active Substance: METHOTREXATE
     Route: 048
  164. METHOTREXATE [Suspect]
     Active Substance: METHOTREXATE
     Route: 065
  165. METHOTREXATE [Suspect]
     Active Substance: METHOTREXATE
     Route: 013
  166. METHOTREXATE [Suspect]
     Active Substance: METHOTREXATE
     Route: 058
  167. METHOTREXATE [Suspect]
     Active Substance: METHOTREXATE
     Route: 065
  168. METHOTREXATE [Suspect]
     Active Substance: METHOTREXATE
     Route: 013
  169. METHOTREXATE [Suspect]
     Active Substance: METHOTREXATE
     Route: 058
  170. CIMZIA [Suspect]
     Active Substance: CERTOLIZUMAB PEGOL
     Indication: Rheumatoid arthritis
     Route: 058
  171. CIMZIA [Suspect]
     Active Substance: CERTOLIZUMAB PEGOL
     Indication: Psoriasis
     Route: 058
  172. CIMZIA [Suspect]
     Active Substance: CERTOLIZUMAB PEGOL
     Route: 065
  173. CIMZIA [Suspect]
     Active Substance: CERTOLIZUMAB PEGOL
     Route: 058
  174. CIMZIA [Suspect]
     Active Substance: CERTOLIZUMAB PEGOL
     Route: 058
  175. CIMZIA [Suspect]
     Active Substance: CERTOLIZUMAB PEGOL
     Route: 058
  176. CIMZIA [Suspect]
     Active Substance: CERTOLIZUMAB PEGOL
     Route: 058
  177. ACTEMRA [Suspect]
     Active Substance: TOCILIZUMAB
     Indication: Rheumatoid arthritis
     Route: 042
  178. ACTEMRA [Suspect]
     Active Substance: TOCILIZUMAB
     Route: 065
  179. ACTEMRA [Suspect]
     Active Substance: TOCILIZUMAB
     Route: 058
  180. ACTEMRA [Suspect]
     Active Substance: TOCILIZUMAB
     Route: 042
  181. ACTEMRA [Suspect]
     Active Substance: TOCILIZUMAB
     Route: 042
  182. ACTEMRA [Suspect]
     Active Substance: TOCILIZUMAB
     Route: 065
  183. ACTEMRA [Suspect]
     Active Substance: TOCILIZUMAB
     Route: 042
  184. ACTEMRA [Suspect]
     Active Substance: TOCILIZUMAB
     Route: 048
  185. ACTEMRA [Suspect]
     Active Substance: TOCILIZUMAB
     Route: 061
  186. ACTEMRA [Suspect]
     Active Substance: TOCILIZUMAB
     Route: 065
  187. ACTEMRA [Suspect]
     Active Substance: TOCILIZUMAB
     Route: 058
  188. RITUXIMAB [Suspect]
     Active Substance: RITUXIMAB
     Indication: Rheumatoid arthritis
     Route: 042
  189. RITUXIMAB [Suspect]
     Active Substance: RITUXIMAB
     Route: 042
  190. RITUXIMAB [Suspect]
     Active Substance: RITUXIMAB
     Route: 042
  191. RITUXIMAB [Suspect]
     Active Substance: RITUXIMAB
     Route: 042
  192. RITUXIMAB [Suspect]
     Active Substance: RITUXIMAB
     Route: 042
  193. ALENDRONIC ACID [Suspect]
     Active Substance: ALENDRONIC ACID
     Indication: Rheumatoid arthritis
     Route: 065
  194. ALENDRONIC ACID [Suspect]
     Active Substance: ALENDRONIC ACID
     Route: 048
  195. ORENCIA [Suspect]
     Active Substance: ABATACEPT
     Indication: Rheumatoid arthritis
     Route: 041
  196. ORENCIA [Suspect]
     Active Substance: ABATACEPT
     Route: 042
  197. ORENCIA [Suspect]
     Active Substance: ABATACEPT
     Route: 058
  198. ORENCIA [Suspect]
     Active Substance: ABATACEPT
     Route: 058
  199. ORENCIA [Suspect]
     Active Substance: ABATACEPT
     Route: 065
  200. ORENCIA [Suspect]
     Active Substance: ABATACEPT
     Route: 058
  201. ORENCIA [Suspect]
     Active Substance: ABATACEPT
     Route: 065
  202. ORENCIA [Suspect]
     Active Substance: ABATACEPT
     Route: 058
  203. ORENCIA [Suspect]
     Active Substance: ABATACEPT
     Route: 058
  204. ORENCIA [Suspect]
     Active Substance: ABATACEPT
     Route: 058
  205. ORENCIA [Suspect]
     Active Substance: ABATACEPT
     Route: 058
  206. ORENCIA [Suspect]
     Active Substance: ABATACEPT
     Route: 058
  207. ORENCIA [Suspect]
     Active Substance: ABATACEPT
     Route: 058
  208. ORENCIA [Suspect]
     Active Substance: ABATACEPT
     Route: 042
  209. ORENCIA [Suspect]
     Active Substance: ABATACEPT
     Route: 042
  210. ORENCIA [Suspect]
     Active Substance: ABATACEPT
     Route: 042
  211. FOSAMAX [Suspect]
     Active Substance: ALENDRONATE SODIUM
     Indication: Rheumatoid arthritis
     Route: 048
  212. FOSAMAX [Suspect]
     Active Substance: ALENDRONATE SODIUM
     Route: 065
  213. FOSAMAX [Suspect]
     Active Substance: ALENDRONATE SODIUM
     Route: 048
  214. FOSAMAX [Suspect]
     Active Substance: ALENDRONATE SODIUM
     Route: 065
  215. PLAQUENIL [Suspect]
     Active Substance: HYDROXYCHLOROQUINE SULFATE
     Indication: Rheumatoid arthritis
     Route: 065
  216. RITUXAN [Suspect]
     Active Substance: RITUXIMAB
     Indication: Rheumatoid arthritis
     Route: 042
  217. RITUXAN [Suspect]
     Active Substance: RITUXIMAB
     Route: 058
  218. RITUXAN [Suspect]
     Active Substance: RITUXIMAB
     Route: 042
  219. RITUXAN [Suspect]
     Active Substance: RITUXIMAB
     Route: 042
  220. SALAZOPYRINE [Suspect]
     Active Substance: SULFASALAZINE
     Indication: Rheumatoid arthritis
     Route: 048
  221. ALENDRONATE SODIUM [Suspect]
     Active Substance: ALENDRONATE SODIUM
     Indication: Rheumatoid arthritis
     Route: 048
  222. ALENDRONATE SODIUM [Suspect]
     Active Substance: ALENDRONATE SODIUM
     Route: 065
  223. ALENDRONATE SODIUM [Suspect]
     Active Substance: ALENDRONATE SODIUM
     Route: 048
  224. ALENDRONATE SODIUM [Suspect]
     Active Substance: ALENDRONATE SODIUM
     Route: 048
  225. SULFATHALIDINE [Suspect]
     Active Substance: PHTHALYLSULFATHIAZOLE
     Indication: Product used for unknown indication
     Route: 065
  226. SULFATHALIDINE [Suspect]
     Active Substance: PHTHALYLSULFATHIAZOLE
     Route: 065
  227. PREDNISONE [Suspect]
     Active Substance: PREDNISONE
     Indication: Rheumatoid arthritis
     Route: 048
  228. ARAVA [Suspect]
     Active Substance: LEFLUNOMIDE
     Indication: Rheumatoid arthritis
     Route: 048
  229. ARAVA [Suspect]
     Active Substance: LEFLUNOMIDE
     Route: 065
  230. ARAVA [Suspect]
     Active Substance: LEFLUNOMIDE
     Route: 048
  231. ARAVA [Suspect]
     Active Substance: LEFLUNOMIDE
     Route: 048
  232. ARAVA [Suspect]
     Active Substance: LEFLUNOMIDE
     Route: 048
  233. ARAVA [Suspect]
     Active Substance: LEFLUNOMIDE
     Route: 065
  234. XELJANZ [Suspect]
     Active Substance: TOFACITINIB CITRATE
     Indication: Rheumatoid arthritis
     Route: 048
  235. XELJANZ [Suspect]
     Active Substance: TOFACITINIB CITRATE
     Indication: Psoriatic arthropathy
     Route: 048
  236. XELJANZ [Suspect]
     Active Substance: TOFACITINIB CITRATE
     Route: 065
  237. XELJANZ [Suspect]
     Active Substance: TOFACITINIB CITRATE
     Route: 065
  238. XELJANZ [Suspect]
     Active Substance: TOFACITINIB CITRATE
     Route: 048
  239. XELJANZ [Suspect]
     Active Substance: TOFACITINIB CITRATE
     Route: 065
  240. XELJANZ [Suspect]
     Active Substance: TOFACITINIB CITRATE
     Route: 065
  241. XELJANZ [Suspect]
     Active Substance: TOFACITINIB CITRATE
     Route: 065
  242. XELJANZ [Suspect]
     Active Substance: TOFACITINIB CITRATE
     Route: 048
  243. XELJANZ [Suspect]
     Active Substance: TOFACITINIB CITRATE
     Route: 065
  244. XELJANZ [Suspect]
     Active Substance: TOFACITINIB CITRATE
     Route: 048
  245. OTEZLA [Suspect]
     Active Substance: APREMILAST
     Indication: Product used for unknown indication
     Route: 048
  246. OTEZLA [Suspect]
     Active Substance: APREMILAST
     Route: 065
  247. ENBREL [Suspect]
     Active Substance: ETANERCEPT
     Indication: Rheumatoid arthritis
     Route: 058
  248. ENBREL [Suspect]
     Active Substance: ETANERCEPT
     Indication: Psoriatic arthropathy
     Route: 058
  249. ENBREL [Suspect]
     Active Substance: ETANERCEPT
     Route: 058
  250. ENBREL [Suspect]
     Active Substance: ETANERCEPT
     Route: 058
  251. ENBREL [Suspect]
     Active Substance: ETANERCEPT
     Route: 058
  252. ENBREL [Suspect]
     Active Substance: ETANERCEPT
     Route: 065
  253. ENBREL [Suspect]
     Active Substance: ETANERCEPT
     Route: 065
  254. ENBREL [Suspect]
     Active Substance: ETANERCEPT
     Route: 058
  255. ENBREL [Suspect]
     Active Substance: ETANERCEPT
     Route: 058
  256. ENBREL [Suspect]
     Active Substance: ETANERCEPT
     Route: 058
  257. ENBREL [Suspect]
     Active Substance: ETANERCEPT
     Route: 058
  258. HUMIRA [Suspect]
     Active Substance: ADALIMUMAB
     Indication: Rheumatoid arthritis
     Route: 058
  259. HUMIRA [Suspect]
     Active Substance: ADALIMUMAB
     Indication: Psoriatic arthropathy
     Route: 057
  260. HUMIRA [Suspect]
     Active Substance: ADALIMUMAB
     Route: 058
  261. HUMIRA [Suspect]
     Active Substance: ADALIMUMAB
     Route: 057
  262. HUMIRA [Suspect]
     Active Substance: ADALIMUMAB
     Route: 058
  263. HUMIRA [Suspect]
     Active Substance: ADALIMUMAB
     Route: 065
  264. HUMIRA [Suspect]
     Active Substance: ADALIMUMAB
     Route: 065
  265. HUMIRA [Suspect]
     Active Substance: ADALIMUMAB
     Route: 058
  266. HUMIRA [Suspect]
     Active Substance: ADALIMUMAB
     Route: 058
  267. HUMIRA [Suspect]
     Active Substance: ADALIMUMAB
     Route: 058
  268. HUMIRA [Suspect]
     Active Substance: ADALIMUMAB
     Route: 058
  269. HUMIRA [Suspect]
     Active Substance: ADALIMUMAB
     Route: 058
  270. STELARA [Suspect]
     Active Substance: USTEKINUMAB
     Indication: Psoriatic arthropathy
     Route: 058
  271. STELARA [Suspect]
     Active Substance: USTEKINUMAB
     Route: 042
  272. STELARA [Suspect]
     Active Substance: USTEKINUMAB
     Route: 050
  273. STELARA [Suspect]
     Active Substance: USTEKINUMAB
     Route: 042
  274. TOPICORT [Suspect]
     Active Substance: DESOXIMETASONE
     Indication: Rheumatoid arthritis
     Route: 058
  275. TOPICORT [Suspect]
     Active Substance: DESOXIMETASONE
     Route: 048
  276. TOPICORT [Suspect]
     Active Substance: DESOXIMETASONE
     Route: 003
  277. CETIRIZINE HYDROCHLORIDE\PSEUDOEPHEDRINE HYDROCHLORIDE [Suspect]
     Active Substance: CETIRIZINE HYDROCHLORIDE\PSEUDOEPHEDRINE HYDROCHLORIDE
     Indication: Rheumatoid arthritis
     Route: 065
  278. FLUMETHASONE PIVALATE [Suspect]
     Active Substance: FLUMETHASONE PIVALATE
     Indication: Rheumatoid arthritis
     Route: 058
  279. FLUMETHASONE PIVALATE [Suspect]
     Active Substance: FLUMETHASONE PIVALATE
     Route: 003
  280. CELEBREX [Suspect]
     Active Substance: CELECOXIB
     Indication: Product used for unknown indication
     Route: 048
  281. CETIRIZINE HYDROCHLORIDE [Suspect]
     Active Substance: CETIRIZINE HYDROCHLORIDE
     Indication: Rheumatoid arthritis
     Route: 048
  282. CETIRIZINE HYDROCHLORIDE [Suspect]
     Active Substance: CETIRIZINE HYDROCHLORIDE
     Route: 016
  283. CETIRIZINE HYDROCHLORIDE [Suspect]
     Active Substance: CETIRIZINE HYDROCHLORIDE
     Route: 016
  284. CETIRIZINE HYDROCHLORIDE [Suspect]
     Active Substance: CETIRIZINE HYDROCHLORIDE
     Route: 016
  285. CETIRIZINE HYDROCHLORIDE [Suspect]
     Active Substance: CETIRIZINE HYDROCHLORIDE
     Route: 016
  286. CETIRIZINE HYDROCHLORIDE [Suspect]
     Active Substance: CETIRIZINE HYDROCHLORIDE
     Route: 016
  287. CETIRIZINE HYDROCHLORIDE [Suspect]
     Active Substance: CETIRIZINE HYDROCHLORIDE
     Route: 016
  288. CETIRIZINE HYDROCHLORIDE [Suspect]
     Active Substance: CETIRIZINE HYDROCHLORIDE
     Route: 048
  289. CETIRIZINE HYDROCHLORIDE [Suspect]
     Active Substance: CETIRIZINE HYDROCHLORIDE
     Route: 065
  290. PSEUDOEPHEDRINE HYDROCHLORIDE [Suspect]
     Active Substance: PSEUDOEPHEDRINE HYDROCHLORIDE
     Indication: Rheumatoid arthritis
     Route: 065
  291. PSEUDOEPHEDRINE HYDROCHLORIDE [Suspect]
     Active Substance: PSEUDOEPHEDRINE HYDROCHLORIDE
     Route: 065
  292. PSEUDOEPHEDRINE HYDROCHLORIDE [Suspect]
     Active Substance: PSEUDOEPHEDRINE HYDROCHLORIDE
     Route: 065
  293. PSEUDOEPHEDRINE HYDROCHLORIDE [Suspect]
     Active Substance: PSEUDOEPHEDRINE HYDROCHLORIDE
     Route: 065
  294. PSEUDOEPHEDRINE HYDROCHLORIDE [Suspect]
     Active Substance: PSEUDOEPHEDRINE HYDROCHLORIDE
     Route: 065
  295. PSEUDOEPHEDRINE HYDROCHLORIDE [Suspect]
     Active Substance: PSEUDOEPHEDRINE HYDROCHLORIDE
     Route: 065
  296. DESOXIMETASONE [Suspect]
     Active Substance: DESOXIMETASONE
     Indication: Rheumatoid arthritis
     Route: 048
  297. DESOXIMETASONE [Suspect]
     Active Substance: DESOXIMETASONE
     Route: 058
  298. DESOXIMETASONE [Suspect]
     Active Substance: DESOXIMETASONE
     Route: 048
  299. DESOXIMETASONE [Suspect]
     Active Substance: DESOXIMETASONE
     Route: 048
  300. DESOXIMETASONE [Suspect]
     Active Substance: DESOXIMETASONE
     Route: 048
  301. DESOXIMETASONE [Suspect]
     Active Substance: DESOXIMETASONE
     Route: 065
  302. DESOXIMETASONE [Suspect]
     Active Substance: DESOXIMETASONE
     Route: 058
  303. DESOXIMETASONE [Suspect]
     Active Substance: DESOXIMETASONE
     Route: 003
  304. DESOXIMETASONE [Suspect]
     Active Substance: DESOXIMETASONE
     Route: 003
  305. DESOXIMETASONE [Suspect]
     Active Substance: DESOXIMETASONE
     Route: 003
  306. DESOXIMETASONE [Suspect]
     Active Substance: DESOXIMETASONE
     Route: 003
  307. DESOXIMETASONE [Suspect]
     Active Substance: DESOXIMETASONE
     Route: 003
  308. DESOXIMETASONE [Suspect]
     Active Substance: DESOXIMETASONE
     Route: 003
  309. DESOXIMETASONE [Suspect]
     Active Substance: DESOXIMETASONE
     Route: 003
  310. DESOXIMETASONE [Suspect]
     Active Substance: DESOXIMETASONE
     Route: 003
  311. CETIRIZINE HYDROCHLORIDE\PSEUDOEPHEDRINE HYDROCHLORIDE [Suspect]
     Active Substance: CETIRIZINE HYDROCHLORIDE\PSEUDOEPHEDRINE HYDROCHLORIDE
     Indication: Rheumatoid arthritis
     Route: 065
  312. CETIRIZINE HYDROCHLORIDE\PSEUDOEPHEDRINE HYDROCHLORIDE [Suspect]
     Active Substance: CETIRIZINE HYDROCHLORIDE\PSEUDOEPHEDRINE HYDROCHLORIDE
     Route: 065
  313. CETIRIZINE HYDROCHLORIDE\PSEUDOEPHEDRINE HYDROCHLORIDE [Suspect]
     Active Substance: CETIRIZINE HYDROCHLORIDE\PSEUDOEPHEDRINE HYDROCHLORIDE
     Route: 048
  314. CETIRIZINE HYDROCHLORIDE\PSEUDOEPHEDRINE HYDROCHLORIDE [Suspect]
     Active Substance: CETIRIZINE HYDROCHLORIDE\PSEUDOEPHEDRINE HYDROCHLORIDE
     Route: 065
  315. CETIRIZINE HYDROCHLORIDE\PSEUDOEPHEDRINE HYDROCHLORIDE [Suspect]
     Active Substance: CETIRIZINE HYDROCHLORIDE\PSEUDOEPHEDRINE HYDROCHLORIDE
     Route: 065
  316. CETIRIZINE HYDROCHLORIDE\PSEUDOEPHEDRINE HYDROCHLORIDE [Suspect]
     Active Substance: CETIRIZINE HYDROCHLORIDE\PSEUDOEPHEDRINE HYDROCHLORIDE
     Route: 048
  317. CETIRIZINE HYDROCHLORIDE\PSEUDOEPHEDRINE HYDROCHLORIDE [Suspect]
     Active Substance: CETIRIZINE HYDROCHLORIDE\PSEUDOEPHEDRINE HYDROCHLORIDE
     Route: 065
  318. CETIRIZINE HYDROCHLORIDE\PSEUDOEPHEDRINE HYDROCHLORIDE [Suspect]
     Active Substance: CETIRIZINE HYDROCHLORIDE\PSEUDOEPHEDRINE HYDROCHLORIDE
     Route: 065
  319. CETIRIZINE HYDROCHLORIDE\PSEUDOEPHEDRINE HYDROCHLORIDE [Suspect]
     Active Substance: CETIRIZINE HYDROCHLORIDE\PSEUDOEPHEDRINE HYDROCHLORIDE
     Route: 065
  320. CETIRIZINE HYDROCHLORIDE\PSEUDOEPHEDRINE HYDROCHLORIDE [Suspect]
     Active Substance: CETIRIZINE HYDROCHLORIDE\PSEUDOEPHEDRINE HYDROCHLORIDE
     Route: 065
  321. CETIRIZINE HYDROCHLORIDE\PSEUDOEPHEDRINE HYDROCHLORIDE [Suspect]
     Active Substance: CETIRIZINE HYDROCHLORIDE\PSEUDOEPHEDRINE HYDROCHLORIDE
     Route: 065
  322. CETIRIZINE HYDROCHLORIDE\PSEUDOEPHEDRINE HYDROCHLORIDE [Suspect]
     Active Substance: CETIRIZINE HYDROCHLORIDE\PSEUDOEPHEDRINE HYDROCHLORIDE
     Route: 065
  323. TOFACITINIB CITRATE [Suspect]
     Active Substance: TOFACITINIB CITRATE
     Indication: Rheumatoid arthritis
     Route: 048
  324. TOFACITINIB CITRATE [Suspect]
     Active Substance: TOFACITINIB CITRATE
     Indication: Psoriatic arthropathy
     Route: 048
  325. TOFACITINIB CITRATE [Suspect]
     Active Substance: TOFACITINIB CITRATE
     Route: 048
  326. TOFACITINIB CITRATE [Suspect]
     Active Substance: TOFACITINIB CITRATE
     Route: 058
  327. TOFACITINIB CITRATE [Suspect]
     Active Substance: TOFACITINIB CITRATE
     Route: 065
  328. HYDROXYCHLOROQUINE DIPHOSPHATE [Suspect]
     Active Substance: HYDROXYCHLOROQUINE DIPHOSPHATE
     Indication: Product used for unknown indication
     Route: 065
  329. SARILUMAB [Suspect]
     Active Substance: SARILUMAB
     Indication: Rheumatoid arthritis
     Route: 065
  330. TOFACITINIB [Suspect]
     Active Substance: TOFACITINIB
     Indication: Rheumatoid arthritis
     Route: 065
  331. TOFACITINIB [Suspect]
     Active Substance: TOFACITINIB
     Route: 048
  332. TOFACITINIB [Suspect]
     Active Substance: TOFACITINIB
     Route: 048
  333. TOFACITINIB [Suspect]
     Active Substance: TOFACITINIB
     Route: 048
  334. HYDROXYCHLOROQUINE SULFATE [Suspect]
     Active Substance: HYDROXYCHLOROQUINE SULFATE
     Indication: Rheumatoid arthritis
     Route: 048
  335. HYDROXYCHLOROQUINE SULFATE [Suspect]
     Active Substance: HYDROXYCHLOROQUINE SULFATE
     Route: 048
  336. HYDROXYCHLOROQUINE SULFATE [Suspect]
     Active Substance: HYDROXYCHLOROQUINE SULFATE
     Route: 066
  337. HYDROXYCHLOROQUINE SULFATE [Suspect]
     Active Substance: HYDROXYCHLOROQUINE SULFATE
     Route: 065
  338. HYDROXYCHLOROQUINE SULFATE [Suspect]
     Active Substance: HYDROXYCHLOROQUINE SULFATE
     Route: 065
  339. HYDROXYCHLOROQUINE SULFATE [Suspect]
     Active Substance: HYDROXYCHLOROQUINE SULFATE
     Route: 065
  340. HYDROXYCHLOROQUINE SULFATE [Suspect]
     Active Substance: HYDROXYCHLOROQUINE SULFATE
     Route: 048
  341. HYDROXYCHLOROQUINE SULFATE [Suspect]
     Active Substance: HYDROXYCHLOROQUINE SULFATE
     Route: 066
  342. HYDROXYCHLOROQUINE SULFATE [Suspect]
     Active Substance: HYDROXYCHLOROQUINE SULFATE
     Route: 065
  343. HYDROXYCHLOROQUINE SULFATE [Suspect]
     Active Substance: HYDROXYCHLOROQUINE SULFATE
     Route: 005
  344. HYDROXYCHLOROQUINE SULFATE [Suspect]
     Active Substance: HYDROXYCHLOROQUINE SULFATE
     Route: 048
  345. HYDROXYCHLOROQUINE SULFATE [Suspect]
     Active Substance: HYDROXYCHLOROQUINE SULFATE
     Route: 065
  346. HYDROXYCHLOROQUINE SULFATE [Suspect]
     Active Substance: HYDROXYCHLOROQUINE SULFATE
     Route: 048
  347. HYDROXYCHLOROQUINE [Suspect]
     Active Substance: HYDROXYCHLOROQUINE
     Indication: Rheumatoid arthritis
     Route: 065
  348. HYDROXYCHLOROQUINE [Suspect]
     Active Substance: HYDROXYCHLOROQUINE
     Route: 048
  349. HYDROXYCHLOROQUINE [Suspect]
     Active Substance: HYDROXYCHLOROQUINE
     Route: 065
  350. HYDROXYCHLOROQUINE [Suspect]
     Active Substance: HYDROXYCHLOROQUINE
     Route: 065
  351. HYDROXYCHLOROQUINE [Suspect]
     Active Substance: HYDROXYCHLOROQUINE
     Route: 065
  352. HYDROXYCHLOROQUINE [Suspect]
     Active Substance: HYDROXYCHLOROQUINE
     Route: 048
  353. HYDROXYCHLOROQUINE [Suspect]
     Active Substance: HYDROXYCHLOROQUINE
     Route: 065
  354. HYDROXYCHLOROQUINE [Suspect]
     Active Substance: HYDROXYCHLOROQUINE
     Route: 065
  355. HYDROXYCHLOROQUINE [Suspect]
     Active Substance: HYDROXYCHLOROQUINE
     Route: 066
  356. HYDROXYCHLOROQUINE [Suspect]
     Active Substance: HYDROXYCHLOROQUINE
     Route: 048
  357. HYDROXYCHLOROQUINE [Suspect]
     Active Substance: HYDROXYCHLOROQUINE
     Route: 048
  358. HYDROXYCHLOROQUINE [Suspect]
     Active Substance: HYDROXYCHLOROQUINE
     Route: 065
  359. HYDROXYCHLOROQUINE [Suspect]
     Active Substance: HYDROXYCHLOROQUINE
     Route: 048
  360. HYDROXYCHLOROQUINE [Suspect]
     Active Substance: HYDROXYCHLOROQUINE
     Route: 048
  361. HYDROXYCHLOROQUINE [Suspect]
     Active Substance: HYDROXYCHLOROQUINE
     Route: 065
  362. CETIRIZINE HYDROCHLORIDE [Suspect]
     Active Substance: CETIRIZINE HYDROCHLORIDE
     Indication: Rheumatoid arthritis
     Route: 065
  363. CETIRIZINE HYDROCHLORIDE [Suspect]
     Active Substance: CETIRIZINE HYDROCHLORIDE
     Route: 005
  364. CETIRIZINE HYDROCHLORIDE [Suspect]
     Active Substance: CETIRIZINE HYDROCHLORIDE
     Route: 016
  365. CETIRIZINE HYDROCHLORIDE [Suspect]
     Active Substance: CETIRIZINE HYDROCHLORIDE
     Route: 065
  366. CETIRIZINE HYDROCHLORIDE [Suspect]
     Active Substance: CETIRIZINE HYDROCHLORIDE
     Route: 065
  367. VITAMIN D3 [Suspect]
     Active Substance: CHOLECALCIFEROL
     Indication: Product used for unknown indication
     Route: 065
  368. VITAMIN C [Suspect]
     Active Substance: ASCORBIC ACID
     Indication: Product used for unknown indication
     Route: 065
  369. PHTHALYLSULFATHIAZOLE [Suspect]
     Active Substance: PHTHALYLSULFATHIAZOLE
     Indication: Rheumatoid arthritis
     Route: 065
  370. PHTHALYLSULFATHIAZOLE [Suspect]
     Active Substance: PHTHALYLSULFATHIAZOLE
     Route: 048
  371. PHTHALYLSULFATHIAZOLE [Suspect]
     Active Substance: PHTHALYLSULFATHIAZOLE
     Route: 048
  372. PHTHALYLSULFATHIAZOLE [Suspect]
     Active Substance: PHTHALYLSULFATHIAZOLE
     Route: 016
  373. PHTHALYLSULFATHIAZOLE [Suspect]
     Active Substance: PHTHALYLSULFATHIAZOLE
     Route: 048
  374. PHTHALYLSULFATHIAZOLE [Suspect]
     Active Substance: PHTHALYLSULFATHIAZOLE
     Route: 048
  375. PHTHALYLSULFATHIAZOLE [Suspect]
     Active Substance: PHTHALYLSULFATHIAZOLE
     Route: 048
  376. PHTHALYLSULFATHIAZOLE [Suspect]
     Active Substance: PHTHALYLSULFATHIAZOLE
     Route: 058
  377. PHTHALYLSULFATHIAZOLE [Suspect]
     Active Substance: PHTHALYLSULFATHIAZOLE
     Route: 042
  378. PHTHALYLSULFATHIAZOLE [Suspect]
     Active Substance: PHTHALYLSULFATHIAZOLE
     Route: 042
  379. PHTHALYLSULFATHIAZOLE [Suspect]
     Active Substance: PHTHALYLSULFATHIAZOLE
     Route: 048
  380. CORTISONE ACETATE [Suspect]
     Active Substance: CORTISONE ACETATE
     Indication: Rheumatoid arthritis
     Route: 065
  381. CORTISONE ACETATE [Suspect]
     Active Substance: CORTISONE ACETATE
     Route: 065
  382. CORTISONE ACETATE [Suspect]
     Active Substance: CORTISONE ACETATE
     Route: 061
  383. CORTISONE ACETATE [Suspect]
     Active Substance: CORTISONE ACETATE
     Route: 048
  384. CORTISONE ACETATE [Suspect]
     Active Substance: CORTISONE ACETATE
     Route: 065
  385. CORTISONE ACETATE [Suspect]
     Active Substance: CORTISONE ACETATE
     Route: 048
  386. CORTISONE ACETATE [Suspect]
     Active Substance: CORTISONE ACETATE
     Route: 065
  387. CORTISONE ACETATE [Suspect]
     Active Substance: CORTISONE ACETATE
     Route: 061
  388. CORTISONE ACETATE [Suspect]
     Active Substance: CORTISONE ACETATE
     Route: 065
  389. CORTISONE ACETATE [Suspect]
     Active Substance: CORTISONE ACETATE
     Route: 061
  390. CORTISONE ACETATE [Suspect]
     Active Substance: CORTISONE ACETATE
     Route: 061
  391. CERTOLIZUMAB PEGOL [Suspect]
     Active Substance: CERTOLIZUMAB PEGOL
     Indication: Rheumatoid arthritis
     Route: 058
  392. TOCILIZUMAB [Suspect]
     Active Substance: TOCILIZUMAB
     Indication: Rheumatoid arthritis
     Route: 058
  393. TOCILIZUMAB [Suspect]
     Active Substance: TOCILIZUMAB
     Route: 042
  394. TOCILIZUMAB [Suspect]
     Active Substance: TOCILIZUMAB
     Route: 005
  395. TOCILIZUMAB [Suspect]
     Active Substance: TOCILIZUMAB
     Route: 065
  396. TOCILIZUMAB [Suspect]
     Active Substance: TOCILIZUMAB
     Route: 065
  397. ADALIMUMAB [Suspect]
     Active Substance: ADALIMUMAB
     Indication: Rheumatoid arthritis
     Route: 048
  398. ADALIMUMAB [Suspect]
     Active Substance: ADALIMUMAB
     Route: 058
  399. ADALIMUMAB [Suspect]
     Active Substance: ADALIMUMAB
     Route: 058
  400. ADALIMUMAB [Suspect]
     Active Substance: ADALIMUMAB
     Route: 058
  401. ADALIMUMAB [Suspect]
     Active Substance: ADALIMUMAB
     Route: 058
  402. ADALIMUMAB [Suspect]
     Active Substance: ADALIMUMAB
     Route: 058
  403. ABATACEPT [Suspect]
     Active Substance: ABATACEPT
     Indication: Rheumatoid arthritis
     Route: 042
  404. ABATACEPT [Suspect]
     Active Substance: ABATACEPT
     Route: 058
  405. GOLIMUMAB [Suspect]
     Active Substance: GOLIMUMAB
     Indication: Rheumatoid arthritis
     Route: 065
  406. GOLIMUMAB [Suspect]
     Active Substance: GOLIMUMAB
     Route: 058
  407. MYCOPHENOLATE MOFETIL [Suspect]
     Active Substance: MYCOPHENOLATE MOFETIL
     Indication: Product used for unknown indication
     Route: 065
  408. CORTISONE [Suspect]
     Active Substance: CORTISONE
     Indication: Rheumatoid arthritis
     Route: 048
  409. CORTISONE [Suspect]
     Active Substance: CORTISONE
     Route: 065
  410. CORTISONE [Suspect]
     Active Substance: CORTISONE
     Route: 058
  411. CORTISONE [Suspect]
     Active Substance: CORTISONE
     Route: 003
  412. CORTISONE [Suspect]
     Active Substance: CORTISONE
     Route: 003
  413. ACETAMINOPHEN [Suspect]
     Active Substance: ACETAMINOPHEN
     Indication: Product used for unknown indication
     Route: 065
  414. SIMPONI [Suspect]
     Active Substance: GOLIMUMAB
     Indication: Rheumatoid arthritis
     Route: 058
  415. SIMPONI [Suspect]
     Active Substance: GOLIMUMAB
     Indication: Psoriatic arthropathy
     Route: 058
  416. SIMPONI [Suspect]
     Active Substance: GOLIMUMAB
     Route: 058
  417. SIMPONI [Suspect]
     Active Substance: GOLIMUMAB
     Route: 042
  418. SIMPONI [Suspect]
     Active Substance: GOLIMUMAB
     Route: 058
  419. SIMPONI [Suspect]
     Active Substance: GOLIMUMAB
     Route: 065
  420. SIMPONI [Suspect]
     Active Substance: GOLIMUMAB
     Route: 042
  421. SIMPONI [Suspect]
     Active Substance: GOLIMUMAB
     Route: 058
  422. SIMPONI [Suspect]
     Active Substance: GOLIMUMAB
     Route: 058
  423. SIMPONI [Suspect]
     Active Substance: GOLIMUMAB
     Route: 058
  424. SIMPONI [Suspect]
     Active Substance: GOLIMUMAB
     Route: 065
  425. SIMPONI [Suspect]
     Active Substance: GOLIMUMAB
     Route: 058
  426. SULFAMETHOXAZOLE [Concomitant]
     Active Substance: SULFAMETHOXAZOLE
     Indication: Product used for unknown indication
     Route: 065
  427. SULFASALAZINE [Concomitant]
     Active Substance: SULFASALAZINE
     Indication: Product used for unknown indication
     Route: 065
  428. DEXAMETHASONE [Concomitant]
     Active Substance: DEXAMETHASONE
     Indication: Product used for unknown indication
     Route: 065
  429. PIROXICAM [Concomitant]
     Active Substance: PIROXICAM
     Indication: Product used for unknown indication
     Route: 065
  430. LEVOTHYROXINE SODIUM [Concomitant]
     Active Substance: LEVOTHYROXINE SODIUM
     Indication: Product used for unknown indication
     Route: 065
  431. CHOLECALCIFEROL [Concomitant]
     Active Substance: CHOLECALCIFEROL
     Indication: Product used for unknown indication
     Route: 065
  432. IBUPROFEN [Concomitant]
     Active Substance: IBUPROFEN
     Indication: Product used for unknown indication
     Route: 065
  433. RAMIPRIL [Concomitant]
     Active Substance: RAMIPRIL
     Indication: Product used for unknown indication
     Route: 065
  434. MAGNESIUM [Concomitant]
     Active Substance: MAGNESIUM
     Indication: Product used for unknown indication
     Route: 065
  435. QUETIAPINE [Concomitant]
     Active Substance: QUETIAPINE
     Indication: Product used for unknown indication
     Route: 065
  436. CALCIUM [Concomitant]
     Active Substance: CALCIUM
     Indication: Product used for unknown indication
     Route: 065
  437. MELOXICAM [Concomitant]
     Active Substance: MELOXICAM
     Indication: Product used for unknown indication
     Route: 065
  438. PREDNISOLONE [Concomitant]
     Active Substance: PREDNISOLONE
     Indication: Product used for unknown indication
     Route: 065
  439. RISEDRONATE SODIUM [Concomitant]
     Active Substance: RISEDRONATE SODIUM
     Indication: Product used for unknown indication
     Route: 065
  440. ZYRTEC [Concomitant]
     Active Substance: CETIRIZINE HYDROCHLORIDE
     Indication: Product used for unknown indication
     Route: 065
  441. SYNTHROID [Concomitant]
     Active Substance: LEVOTHYROXINE SODIUM
     Route: 065
  442. PRINIVIL [Concomitant]
     Active Substance: LISINOPRIL
     Indication: Product used for unknown indication
     Route: 065
  443. LISINOPRIL [Concomitant]
     Active Substance: LISINOPRIL
     Indication: Product used for unknown indication
     Route: 065
  444. LISINOPRIL [Concomitant]
     Active Substance: LISINOPRIL
     Route: 065
  445. ATASOL [Concomitant]
     Indication: Product used for unknown indication
     Route: 065
  446. CAFFEINE CITRATE [Concomitant]
     Active Substance: CAFFEINE CITRATE
     Indication: Product used for unknown indication
     Route: 065
  447. CHOLECALCIFEROL [Concomitant]
     Active Substance: CHOLECALCIFEROL
     Indication: Product used for unknown indication
     Route: 065
  448. CALCIUM GLUCONATE [Concomitant]
     Active Substance: CALCIUM GLUCONATE
     Indication: Product used for unknown indication
     Route: 065
  449. DICLOFENAC POTASSIUM [Concomitant]
     Active Substance: DICLOFENAC POTASSIUM
     Indication: Product used for unknown indication
     Route: 065

REACTIONS (16)
  - Urticaria [Fatal]
  - Decreased appetite [Fatal]
  - Road traffic accident [Fatal]
  - Off label use [Fatal]
  - Sciatica [Fatal]
  - Gait inability [Fatal]
  - Prescribed underdose [Fatal]
  - Chest pain [Fatal]
  - Asthma [Fatal]
  - Blood cholesterol increased [Fatal]
  - Mobility decreased [Fatal]
  - Nausea [Fatal]
  - Injury [Fatal]
  - Asthenia [Fatal]
  - Lower limb fracture [Fatal]
  - Anti-cyclic citrullinated peptide antibody positive [Fatal]
